FAERS Safety Report 17524127 (Version 1)
Quarter: 2020Q1

REPORT INFORMATION
  Report Type: Report from Study
  Country: US (occurrence: US)
  Receive Date: 20200310
  Receipt Date: 20200310
  Transmission Date: 20200409
  Serious: Yes (Death, Hospitalization)
  Sender: FDA-Public Use
  Company Number: US-TEVA-2020-US-1196956

PATIENT
  Age: 67 Year
  Sex: Female

DRUGS (4)
  1. VALGANCICLOVIR. [Concomitant]
     Active Substance: VALGANCICLOVIR
     Indication: CYTOMEGALOVIRUS INFECTION
  2. TACROLIMUS. [Suspect]
     Active Substance: TACROLIMUS
     Indication: IMMUNOSUPPRESSANT DRUG THERAPY
     Dosage: GOAL TROUGH: 10-12
     Route: 065
  3. PREDNISONE. [Suspect]
     Active Substance: PREDNISONE
     Indication: IMMUNOSUPPRESSANT DRUG THERAPY
     Route: 065
  4. LETERMOVIR [Suspect]
     Active Substance: LETERMOVIR
     Indication: CYTOMEGALOVIRUS INFECTION
     Dosage: 480 MILLIGRAM DAILY;
     Route: 048

REACTIONS (2)
  - Cytomegalovirus infection [Fatal]
  - Off label use [Unknown]
